FAERS Safety Report 13329942 (Version 2)
Quarter: 2017Q2

REPORT INFORMATION
  Report Type: Spontaneous
  Country: US (occurrence: US)
  Receive Date: 20170313
  Receipt Date: 20170403
  Transmission Date: 20170830
  Serious: Yes (Other)
  Sender: FDA-Public Use
  Company Number: US-PFIZER INC-2017102227

PATIENT
  Age: 51 Year
  Sex: Female

DRUGS (1)
  1. XELJANZ XR [Suspect]
     Active Substance: TOFACITINIB CITRATE
     Indication: RHEUMATOID ARTHRITIS
     Dosage: 11 MG, UNK
     Dates: start: 201003, end: 201703

REACTIONS (9)
  - Peripheral swelling [Unknown]
  - Rash [Not Recovered/Not Resolved]
  - Genital infection fungal [Not Recovered/Not Resolved]
  - Oropharyngeal pain [Unknown]
  - Skin exfoliation [Unknown]
  - Erythema [Unknown]
  - Swelling face [Unknown]
  - Respiratory tract infection [Unknown]
  - Dry skin [Unknown]
